FAERS Safety Report 9475580 (Version 1)
Quarter: 2013Q3

REPORT INFORMATION
  Report Type: Spontaneous
  Country: US (occurrence: None)
  Receive Date: 20130822
  Receipt Date: 20130822
  Transmission Date: 20140515
  Serious: Yes (Life-Threatening)
  Sender: FDA-Public Use
  Company Number: None

PATIENT
  Age: 35 Year
  Sex: Female
  Weight: 58.2 kg

DRUGS (2)
  1. XARELTO [Suspect]
     Indication: PULMONARY EMBOLISM
     Dates: start: 20130620, end: 20130819
  2. XARELTO [Suspect]
     Indication: DEEP VEIN THROMBOSIS
     Dates: start: 20130620, end: 20130819

REACTIONS (1)
  - Hypotension [None]
